FAERS Safety Report 7338870-X (Version None)
Quarter: 2011Q1

REPORT INFORMATION
  Report Type: 
  Country: None (occurrence: None)
  Receive Date: 20110308
  Receipt Date: 20110209
  Transmission Date: 20110831
  Serious: No
  Sender: FDA-Public Use
  Company Number: US-B.I. PHARMACEUTICALS,INC./RIDGEFIELD-2010-BP-14897BP

PATIENT
  Age: 53 Year
  Sex: Female

DRUGS (5)
  1. SPIRIVA [Suspect]
     Indication: CHRONIC OBSTRUCTIVE PULMONARY DISEASE
     Dosage: 18 MCG
     Route: 055
     Dates: start: 20101013
  2. ADVAIR DISKUS 100/50 [Concomitant]
     Indication: CHRONIC OBSTRUCTIVE PULMONARY DISEASE
     Dosage: 4 PUF
     Route: 055
     Dates: start: 20090101
  3. MUCINEX [Concomitant]
     Dosage: 400 MG
  4. SUDAFED 12 HOUR [Concomitant]
     Dosage: 30 MG
  5. BUDESONIDE [Concomitant]
     Dosage: PUT IN SINUS RINSE THRU NOSE
     Route: 045

REACTIONS (1)
  - DRUG INEFFECTIVE [None]
